FAERS Safety Report 8581931-8 (Version None)
Quarter: 2012Q3

REPORT INFORMATION
  Report Type: 
  Country: None (occurrence: None)
  Receive Date: 20120727
  Receipt Date: 20120712
  Transmission Date: 20120928
  Serious: Yes (Hospitalization)
  Sender: FDA-Public Use
  Company Number: DSU-2012-05578

PATIENT
  Age: 62 Year
  Sex: Male
  Weight: 73.4827 kg

DRUGS (3)
  1. HUMALOG 75/25 (INSULIN LISPRO) (INSULIN LISPRO) [Concomitant]
  2. PRAVASTATIN [Concomitant]
  3. BENICAR [Suspect]
     Indication: HYPERTENSION
     Dosage: 20 MG (20 MG, QD), PER ORAL, 10 MG (QD), PER ORAL
     Route: 048
     Dates: start: 20100101, end: 20120625

REACTIONS (1)
  - TOE AMPUTATION [None]
